FAERS Safety Report 9768381 (Version 1)
Quarter: 2013Q4

REPORT INFORMATION
  Report Type: Spontaneous
  Country: FR (occurrence: FR)
  Receive Date: 20131217
  Receipt Date: 20131217
  Transmission Date: 20140711
  Serious: Yes (Other)
  Sender: FDA-Public Use
  Company Number: FR-OTSUKA-US-2013-12352

PATIENT
  Age: 1 Year
  Sex: Female
  Weight: 8.75 kg

DRUGS (5)
  1. BUSULFEX [Suspect]
     Indication: MEDULLOBLASTOMA
     Dosage: 8.8 MG MILLIGRAM(S), TID (3/DAY)
     Route: 042
     Dates: start: 20131104, end: 20131104
  2. BUSULFEX [Suspect]
     Dosage: 8.8 MG MILLIGRAM(S), QID (4/DAY)
     Route: 042
     Dates: start: 20131105, end: 20131107
  3. BUSULFEX [Suspect]
     Dosage: 8.8 MG MILLIGRAM(S), QD (1/DAY)
     Route: 042
     Dates: start: 20131108, end: 20131108
  4. BACTRIM [Suspect]
     Indication: PRODUCT USED FOR UNKNOWN INDICATION
     Dosage: 200 MG MILLIGRAM(S), 3 IN 1 WEEK
     Route: 065
     Dates: start: 20131026, end: 20131108
  5. ZYVOXID [Concomitant]
     Indication: PRODUCT USED FOR UNKNOWN INDICATION
     Dosage: 90 MG MILLIGRAM(S), TID
     Route: 065
     Dates: start: 20131025, end: 20131104

REACTIONS (3)
  - Enanthema [Recovered/Resolved]
  - Face oedema [Recovered/Resolved]
  - Rash [Recovered/Resolved]
